FAERS Safety Report 4951847-4 (Version None)
Quarter: 2006Q1

REPORT INFORMATION
  Report Type: 
  Country: None (occurrence: None)
  Receive Date: 20060323
  Receipt Date: 20050223
  Transmission Date: 20060701
  Serious: Yes (Life-Threatening, Disabling)
  Sender: FDA-Public Use
  Company Number: US-MERCK-0502USA03481

PATIENT
  Age: 60 Year
  Sex: Male
  Weight: 102 kg

DRUGS (6)
  1. ACCUPRIN [Concomitant]
     Route: 065
  2. ALBUTEROL [Concomitant]
     Route: 065
  3. ISOSORBIDE [Concomitant]
     Route: 065
  4. VIOXX [Suspect]
     Indication: ARTHRITIS
     Route: 048
     Dates: start: 20000101, end: 20030101
  5. VIOXX [Suspect]
     Indication: PAIN
     Route: 048
     Dates: start: 20000101, end: 20030101
  6. ADVIL [Concomitant]
     Route: 065

REACTIONS (5)
  - ABDOMINAL PAIN [None]
  - ARTHROPATHY [None]
  - GROIN PAIN [None]
  - INJURY [None]
  - MYOCARDIAL INFARCTION [None]
